FAERS Safety Report 8774640 (Version 3)
Quarter: 2013Q1

REPORT INFORMATION
  Report Type: Spontaneous
  Country: US (occurrence: US)
  Receive Date: 20120907
  Receipt Date: 20130110
  Transmission Date: 20140127
  Serious: No
  Sender: FDA-Public Use
  Company Number: US-009507513-1209USA001187

PATIENT
  Sex: Female
  Weight: 58.96 kg

DRUGS (4)
  1. PEGINTRON [Suspect]
     Indication: HEPATITIS
     Dosage: 80 MICROGRAM, ONCE A WEEK
     Route: 058
     Dates: start: 20110818, end: 201210
  2. RIBASPHERE [Suspect]
     Indication: HEPATITIS C
     Dosage: 2 CAPSULES TWICE DAILY
     Route: 048
     Dates: end: 201210
  3. RIBASPHERE [Suspect]
     Dosage: 2 CAPSULES  DAILY
  4. RIBASPHERE [Suspect]
     Dosage: 3 CAPSULES A DAY

REACTIONS (5)
  - Night sweats [Recovered/Resolved]
  - Emotional disorder [Recovered/Resolved]
  - Influenza like illness [Recovered/Resolved]
  - Headache [Recovered/Resolved]
  - Fatigue [Recovered/Resolved]
